FAERS Safety Report 25892756 (Version 11)
Quarter: 2025Q4

REPORT INFORMATION
  Report Type: Report from Study
  Country: CA (occurrence: CA)
  Receive Date: 20251007
  Receipt Date: 20251230
  Transmission Date: 20260118
  Serious: Yes (Other)
  Sender: HLS THERAPEUTICS
  Company Number: CA-HLS-202502607

PATIENT
  Age: 41 Year
  Sex: Female

DRUGS (3)
  1. CLOZARIL [Suspect]
     Active Substance: CLOZAPINE
     Indication: Schizophrenia
     Route: 048
     Dates: start: 20060103
  2. UNSPECIFIED INGREDIENT [Concomitant]
     Active Substance: UNSPECIFIED INGREDIENT
     Indication: Arthralgia
     Route: 065
     Dates: start: 20251119
  3. IRON [Concomitant]
     Active Substance: IRON
     Indication: Haemoglobin
     Route: 065
     Dates: start: 20251119

REACTIONS (7)
  - Neutropenia [Recovering/Resolving]
  - Neutrophil count decreased [Unknown]
  - Fatigue [Unknown]
  - Arthralgia [Unknown]
  - Haemoglobin abnormal [Recovering/Resolving]
  - Infection [Recovered/Resolved]
  - White blood cell count decreased [Recovering/Resolving]

NARRATIVE: CASE EVENT DATE: 20250924
